FAERS Safety Report 24602544 (Version 2)
Quarter: 2025Q2

REPORT INFORMATION
  Report Type: Other
  Country: CN (occurrence: CN)
  Receive Date: 20241111
  Receipt Date: 20250530
  Transmission Date: 20250716
  Serious: Yes (Hospitalization, Other)
  Sender: QILU PHARMACEUTICAL (HAINAN) CO., LTD.
  Company Number: CN-QILU PHARMACEUTICAL (HAINAN) CO.  LTD.-QLH-000312-2024

PATIENT
  Age: 58 Year
  Sex: Male
  Weight: 75 kg

DRUGS (1)
  1. IRINOTECAN HYDROCHLORIDE [Suspect]
     Active Substance: IRINOTECAN HYDROCHLORIDE
     Indication: Lung neoplasm malignant
     Dosage: 0.10 G PER DAY
     Route: 041
     Dates: start: 20241015, end: 20241015

REACTIONS (5)
  - Myocardial necrosis marker increased [Recovered/Resolved]
  - Palpitations [Recovered/Resolved]
  - Decreased appetite [Recovered/Resolved]
  - Nausea [Recovered/Resolved]
  - Product use in unapproved indication [Recovered/Resolved]

NARRATIVE: CASE EVENT DATE: 20241015
